FAERS Safety Report 11845735 (Version 2)
Quarter: 2015Q4

REPORT INFORMATION
  Report Type: Report from Study
  Country: JP (occurrence: JP)
  Receive Date: 20151217
  Receipt Date: 20151222
  Transmission Date: 20160305
  Serious: Yes (Life-Threatening, Hospitalization)
  Sender: FDA-Public Use
  Company Number: JP-ELI_LILLY_AND_COMPANY-JP201511002924

PATIENT
  Sex: Female

DRUGS (1)
  1. FORTEO [Suspect]
     Active Substance: TERIPARATIDE
     Indication: PRODUCT USED FOR UNKNOWN INDICATION
     Dosage: UNK
     Route: 058
     Dates: end: 20151119

REACTIONS (4)
  - Blood calcium increased [Recovering/Resolving]
  - Dizziness [Unknown]
  - Nephrocalcinosis [Unknown]
  - Somnolence [Unknown]

NARRATIVE: CASE EVENT DATE: 20151120
